FAERS Safety Report 4379280-7 (Version None)
Quarter: 2004Q2

REPORT INFORMATION
  Report Type: 
  Country: None (occurrence: None)
  Receive Date: 20040610
  Receipt Date: 20040527
  Transmission Date: 20050107
  Serious: Yes (Hospitalization, Disabling)
  Sender: FDA-Public Use
  Company Number: CERZ-10589

PATIENT
  Age: 43 Year
  Sex: Female
  Weight: 72.5755 kg

DRUGS (2)
  1. CEREZYME [Suspect]
     Indication: GAUCHER'S DISEASE
     Dosage: 4600 UNITS Q2WKS IV
     Route: 042
     Dates: end: 20040401
  2. CEREZYME [Suspect]
     Indication: GAUCHER'S DISEASE
     Dosage: 2200 UNITS Q2WK IV
     Route: 042
     Dates: start: 20040401

REACTIONS (13)
  - ARTHRITIS INFECTIVE [None]
  - ATELECTASIS [None]
  - BLOOD MAGNESIUM DECREASED [None]
  - BLOOD POTASSIUM DECREASED [None]
  - ESCHERICHIA BACTERAEMIA [None]
  - JOINT EFFUSION [None]
  - LEUKOPENIA [None]
  - OSTEOMYELITIS [None]
  - OSTEONECROSIS [None]
  - POSTOPERATIVE INFECTION [None]
  - PYREXIA [None]
  - STAPHYLOCOCCAL INFECTION [None]
  - URINARY TRACT INFECTION [None]
